FAERS Safety Report 14899183 (Version 1)
Quarter: 2018Q2

REPORT INFORMATION
  Report Type: Spontaneous
  Country: NL (occurrence: NL)
  Receive Date: 20180516
  Receipt Date: 20180516
  Transmission Date: 20180711
  Serious: No
  Sender: FDA-Public Use
  Company Number: NL-LUPIN PHARMACEUTICALS INC.-2018-01283

PATIENT
  Age: 55 Year
  Sex: Male

DRUGS (6)
  1. TESTOSTERONE. [Suspect]
     Active Substance: TESTOSTERONE
     Indication: PRODUCT USED FOR UNKNOWN INDICATION
     Dosage: GEL
     Route: 065
  2. TESTOSTERONE. [Suspect]
     Active Substance: TESTOSTERONE
     Dosage: 250 MG, INJECTIONS ONCE EVERY 3 WEEKS
     Route: 065
  3. TESTOSTERONE. [Suspect]
     Active Substance: TESTOSTERONE
     Dosage: 1000 MG ONCE EVERY 12 WEEKS
     Route: 065
  4. TESTOSTERONE. [Suspect]
     Active Substance: TESTOSTERONE
     Indication: PRODUCT USED FOR UNKNOWN INDICATION
     Dosage: 250 MG, INJECTIONS ONCE EVERY 2 WEEKS
     Route: 065
  5. TESTOSTERONE. [Suspect]
     Active Substance: TESTOSTERONE
     Dosage: 100 MG INJECTIONS WEEKLY
     Route: 065
  6. ASPIRIN. [Suspect]
     Active Substance: ASPIRIN
     Indication: POLYCYTHAEMIA
     Dosage: 80 MG, QD
     Route: 065

REACTIONS (5)
  - Furuncle [Unknown]
  - Drug hypersensitivity [Unknown]
  - Polycythaemia [Recovered/Resolved]
  - Fatigue [Unknown]
  - Blood iron decreased [Unknown]
